FAERS Safety Report 7767160-6 (Version None)
Quarter: 2011Q3

REPORT INFORMATION
  Report Type: 
  Country: None (occurrence: None)
  Receive Date: 20110922
  Receipt Date: 20101117
  Transmission Date: 20111222
  Serious: No
  Sender: FDA-Public Use
  Company Number: US-ASTRAZENECA-2010SE54930

PATIENT
  Age: 40 Year
  Sex: Male

DRUGS (1)
  1. SEROQUEL [Suspect]
     Indication: BIPOLAR DISORDER
     Dosage: STARTED 50 MG, DAILY AND WAS GRADUALLY INCREASED TO 150 MG, DAILY.
     Route: 048
     Dates: start: 20101001, end: 20101101

REACTIONS (2)
  - CELLULITIS [None]
  - DRUG DOSE OMISSION [None]
